FAERS Safety Report 25458733 (Version 2)
Quarter: 2025Q3

REPORT INFORMATION
  Report Type: Spontaneous
  Country: EU (occurrence: EU)
  Receive Date: 20250620
  Receipt Date: 20250711
  Transmission Date: 20251020
  Serious: Yes (Life-Threatening, Other)
  Sender: BRISTOL-MYERS SQUIBB COMPANY
  Company Number: None

PATIENT
  Age: 69 Year
  Sex: Male
  Weight: 67 kg

DRUGS (7)
  1. OPDIVO [Suspect]
     Active Substance: NIVOLUMAB
     Indication: Malignant melanoma
     Dates: start: 20241119, end: 20250526
  2. OPDIVO [Suspect]
     Active Substance: NIVOLUMAB
     Dates: start: 20241119, end: 20250526
  3. OPDIVO [Suspect]
     Active Substance: NIVOLUMAB
     Dates: start: 20241119, end: 20250526
  4. OPDIVO [Suspect]
     Active Substance: NIVOLUMAB
     Dates: start: 20241119, end: 20250526
  5. YERVOY [Suspect]
     Active Substance: IPILIMUMAB
     Indication: Malignant melanoma
     Dates: start: 20241119, end: 20250120
  6. YERVOY [Suspect]
     Active Substance: IPILIMUMAB
     Dates: start: 20241119, end: 20250120
  7. YERVOY [Suspect]
     Active Substance: IPILIMUMAB
     Dates: start: 20241119, end: 20250120

REACTIONS (3)
  - Dyspnoea [Unknown]
  - Condition aggravated [Not Recovered/Not Resolved]
  - Motor neurone disease [Not Recovered/Not Resolved]

NARRATIVE: CASE EVENT DATE: 20250101
